FAERS Safety Report 14459577 (Version 3)
Quarter: 2018Q1

REPORT INFORMATION
  Report Type: Report from Study
  Country: FR (occurrence: FR)
  Receive Date: 20180130
  Receipt Date: 20180213
  Transmission Date: 20180509
  Serious: Yes (Hospitalization, Other)
  Sender: FDA-Public Use
  Company Number: FR-PFIZER INC-2017521786

PATIENT
  Age: 46 Year
  Sex: Female
  Weight: 41 kg

DRUGS (14)
  1. AFLIBERCEPT [Suspect]
     Active Substance: AFLIBERCEPT
     Indication: COLORECTAL CANCER METASTATIC
     Dosage: 175 MG, CYCLIC
     Route: 041
     Dates: start: 20150305, end: 20150305
  2. ZOPHREN /00955301/ [Concomitant]
     Active Substance: ONDANSETRON
     Dosage: UNK
     Route: 065
     Dates: start: 20150305
  3. G-CSF [Concomitant]
     Active Substance: GRANULOCYTE COLONY-STIMULATING FACTOR NOS
     Dosage: UNK
     Route: 065
     Dates: start: 20150305
  4. AFLIBERCEPT [Suspect]
     Active Substance: AFLIBERCEPT
     Dosage: 165 MG, CYCLIC
     Route: 041
     Dates: start: 20150402, end: 20150402
  5. CALCIUM FOLINATE [Suspect]
     Active Substance: LEUCOVORIN CALCIUM
     Indication: COLORECTAL CANCER METASTATIC
     Dosage: 580 MG, CYCLIC
     Route: 041
     Dates: start: 20150305, end: 20150305
  6. KAYEXALATE [Concomitant]
     Active Substance: SODIUM POLYSTYRENE SULFONATE
     Dosage: UNK
     Route: 065
     Dates: start: 20150422
  7. SPASFON /00765801/ [Concomitant]
     Active Substance: PHLOROGLUCINOL\1,3,5-TRIMETHOXYBENZENE
     Dosage: UNK
     Route: 065
     Dates: start: 20150305
  8. IRINOTECAN HCL [Suspect]
     Active Substance: IRINOTECAN HYDROCHLORIDE
     Indication: COLORECTAL CANCER METASTATIC
     Dosage: 265 MG, CYCLIC
     Route: 041
     Dates: start: 20150305, end: 20150305
  9. IRINOTECAN HCL [Suspect]
     Active Substance: IRINOTECAN HYDROCHLORIDE
     Dosage: 255 MG, CYCLIC
     Route: 041
     Dates: start: 20150402, end: 20150402
  10. FLUOROURACILE PFIZER [Suspect]
     Active Substance: FLUOROURACIL
     Indication: COLORECTAL CANCER METASTATIC
     Dosage: 580 MG, CYCLIC
     Route: 040
     Dates: start: 20150305, end: 20150305
  11. FLUOROURACILE PFIZER [Suspect]
     Active Substance: FLUOROURACIL
     Dosage: 3500 MG, CYCLIC
     Route: 041
     Dates: start: 20150305
  12. FLUOROURACILE PFIZER [Suspect]
     Active Substance: FLUOROURACIL
     Dosage: 565 MG, CYCLIC
     Route: 040
     Dates: start: 20150402, end: 20150402
  13. FLUOROURACILE PFIZER [Suspect]
     Active Substance: FLUOROURACIL
     Dosage: 3400 MG, CYCLIC
     Route: 041
     Dates: start: 20150402
  14. CALCIUM FOLINATE [Suspect]
     Active Substance: LEUCOVORIN CALCIUM
     Dosage: 565 MG, CYCLIC
     Route: 041
     Dates: start: 20150402, end: 20150402

REACTIONS (4)
  - Product use in unapproved indication [Unknown]
  - Tuberculosis [Recovered/Resolved]
  - Sickle cell anaemia [Not Recovered/Not Resolved]
  - Abdominal pain [Recovered/Resolved]

NARRATIVE: CASE EVENT DATE: 20150410
